FAERS Safety Report 7578480-2 (Version None)
Quarter: 2011Q2

REPORT INFORMATION
  Report Type: 
  Country: None (occurrence: None)
  Receive Date: 20110628
  Receipt Date: 20110622
  Transmission Date: 20111010
  Serious: Yes (Death)
  Sender: FDA-Public Use
  Company Number: GB-MERCK-1003GBR00071

PATIENT
  Age: 61 Year
  Sex: Male
  Weight: 61 kg

DRUGS (10)
  1. FLUOROURACIL [Concomitant]
     Indication: NEOPLASM MALIGNANT
     Route: 065
     Dates: start: 20100114, end: 20100118
  2. ZOPICLONE [Concomitant]
     Indication: SLEEP DISORDER
     Route: 065
     Dates: start: 20091231
  3. DOMPERIDONE [Concomitant]
     Indication: NAUSEA
     Route: 065
     Dates: start: 20100114
  4. CISPLATIN [Concomitant]
     Indication: NEOPLASM MALIGNANT
     Route: 065
     Dates: start: 20100114, end: 20100114
  5. FENTANYL [Suspect]
     Route: 061
     Dates: start: 20091020
  6. ONDANSETRON HYDROCHLORIDE [Concomitant]
     Indication: NAUSEA
     Route: 048
     Dates: start: 20100114, end: 20100115
  7. EMEND [Suspect]
     Indication: PROPHYLAXIS OF NAUSEA AND VOMITING
     Route: 048
     Dates: start: 20100114, end: 20100114
  8. EMEND [Suspect]
     Route: 048
     Dates: start: 20100115, end: 20100116
  9. ONDANSETRON HYDROCHLORIDE [Concomitant]
     Indication: VOMITING
     Route: 048
     Dates: start: 20100114, end: 20100115
  10. DEXAMETHASONE [Concomitant]
     Indication: NAUSEA
     Route: 065
     Dates: start: 20100114, end: 20100117

REACTIONS (2)
  - DRUG INTERACTION [None]
  - TOXICITY TO VARIOUS AGENTS [None]
